FAERS Safety Report 8523226-4 (Version None)
Quarter: 2012Q3

REPORT INFORMATION
  Report Type: 
  Country: None (occurrence: None)
  Receive Date: 20120709
  Receipt Date: 20120629
  Transmission Date: 20120928
  Serious: Yes (Other)
  Sender: FDA-Public Use
  Company Number: DSA_58271_2012

PATIENT
  Age: 28 Year
  Sex: Female

DRUGS (2)
  1. FLAGYL [Suspect]
     Indication: UTERINE INFLAMMATION
     Dosage: 400 MG BID ORAL
     Route: 048
     Dates: start: 20120622, end: 20120101
  2. OMEPRAZOLE [Concomitant]

REACTIONS (9)
  - RASH MACULAR [None]
  - SUFFOCATION FEELING [None]
  - ABDOMINAL DISTENSION [None]
  - TONGUE SPASM [None]
  - THROAT TIGHTNESS [None]
  - HEADACHE [None]
  - ASPHYXIA [None]
  - PHARYNGEAL OEDEMA [None]
  - CONVULSION [None]
